FAERS Safety Report 20429742 (Version 1)
Quarter: 2022Q1

REPORT INFORMATION
  Report Type: Spontaneous
  Country: NL (occurrence: NL)
  Receive Date: 20220204
  Receipt Date: 20220204
  Transmission Date: 20220423
  Serious: Yes (Other)
  Sender: FDA-Public Use
  Company Number: NL-AstraZeneca-2019SF30101

PATIENT
  Age: 66 Year
  Sex: Female

DRUGS (2)
  1. ALBUTEROL [Suspect]
     Active Substance: ALBUTEROL
     Indication: Product used for unknown indication
     Dosage: TWO PUFFS
     Route: 065
  2. ALVESCO [Suspect]
     Active Substance: CICLESONIDE
     Indication: Product used for unknown indication
     Dosage: TWO PUFFS
     Route: 055

REACTIONS (7)
  - Cataract [Unknown]
  - Glaucoma [Unknown]
  - Intraocular pressure increased [Unknown]
  - Pulmonary function test decreased [Unknown]
  - Blepharitis [Unknown]
  - Tinnitus [Unknown]
  - Dyspnoea [Unknown]
